FAERS Safety Report 6565790-0 (Version None)
Quarter: 2010Q1

REPORT INFORMATION
  Report Type: 
  Country: None (occurrence: None)
  Receive Date: 20100201
  Receipt Date: 20080222
  Transmission Date: 20100710
  Serious: No
  Sender: FDA-Public Use
  Company Number: US-ABBOTT-06P-163-0532910-00

PATIENT
  Sex: Male
  Weight: 72.5 kg

DRUGS (4)
  1. LEUPROLIDE ACETATE [Suspect]
     Indication: PROSTATE CANCER
     Route: 030
     Dates: start: 20040301, end: 20040501
  2. LEUPROLIDE ACETATE [Suspect]
     Route: 030
     Dates: start: 20040801
  3. ATORVASTATIN CALCIUM [Concomitant]
     Indication: HYPERLIPIDAEMIA
     Route: 048
     Dates: start: 19980101
  4. METOPROLOL [Concomitant]
     Indication: MYOCARDIAL INFARCTION
     Route: 048
     Dates: start: 19980101

REACTIONS (4)
  - BLOOD PRESSURE DECREASED [None]
  - GYNAECOMASTIA [None]
  - HYPOAESTHESIA [None]
  - LIBIDO DECREASED [None]
